FAERS Safety Report 7986298-1 (Version None)
Quarter: 2011Q4

REPORT INFORMATION
  Report Type: 
  Country: None (occurrence: None)
  Receive Date: 20111216
  Receipt Date: 20110126
  Transmission Date: 20120403
  Serious: No
  Sender: FDA-Public Use
  Company Number: US-BRISTOL-MYERS SQUIBB COMPANY-15511322

PATIENT
  Age: 58 Year
  Sex: Female
  Weight: 63 kg

DRUGS (3)
  1. TOPROL-XL [Concomitant]
  2. LEXAPRO [Concomitant]
  3. ABILIFY [Suspect]
     Dosage: DURATION OF THERAPY:ABOUT 4 MONTHS

REACTIONS (3)
  - OEDEMA PERIPHERAL [None]
  - RESTLESSNESS [None]
  - VISION BLURRED [None]
